FAERS Safety Report 14032764 (Version 1)
Quarter: 2017Q4

REPORT INFORMATION
  Report Type: Spontaneous
  Country: FR (occurrence: FR)
  Receive Date: 20171002
  Receipt Date: 20171002
  Transmission Date: 20180321
  Serious: Yes (Other)
  Sender: FDA-Public Use
  Company Number: FR-MYLANLABS-2017M1061048

PATIENT
  Age: 67 Year
  Sex: Female

DRUGS (3)
  1. TEICOPLANIN [Concomitant]
     Active Substance: TEICOPLANIN
     Indication: ANTIBIOTIC THERAPY
     Dosage: 400 MG, QD
     Route: 058
  2. RIFAMPICIN [Suspect]
     Active Substance: RIFAMPIN
     Indication: ANTIBIOTIC THERAPY
     Dosage: 600 MG, BID
     Route: 048
  3. NICARDIPINE [Interacting]
     Active Substance: NICARDIPINE
     Indication: HYPERTENSION
     Dosage: STARTED AT THE TIME OF ADMISSION
     Route: 065

REACTIONS (3)
  - Hypertension [Recovering/Resolving]
  - Drug interaction [Recovering/Resolving]
  - Posterior reversible encephalopathy syndrome [Recovering/Resolving]
